FAERS Safety Report 8674890 (Version 11)
Quarter: 2014Q4

REPORT INFORMATION
  Report Type: Spontaneous
  Country: US (occurrence: US)
  Receive Date: 20120720
  Receipt Date: 20141013
  Transmission Date: 20150529
  Serious: Yes (Life-Threatening, Hospitalization, Congenital Anomaly, Other)
  Sender: FDA-Public Use
  Company Number: US-PFIZER INC-2012173659

PATIENT
  Sex: Male
  Weight: 2.5 kg

DRUGS (21)
  1. ZOLOFT [Suspect]
     Active Substance: SERTRALINE HYDROCHLORIDE
     Dosage: 150 MG, 2X/DAY
     Route: 064
     Dates: start: 20030116
  2. ACETAMINOPHEN W/OXYCODONE [Concomitant]
     Active Substance: ACETAMINOPHEN\OXYCODONE HYDROCHLORIDE
     Indication: PAIN
     Dosage: 5MG-325MG ONE OR TWO TABLETS EVERY 6 HOURS AS NEEDED
     Route: 064
     Dates: start: 20030625
  3. WELLBUTRIN SR [Concomitant]
     Active Substance: BUPROPION HYDROCHLORIDE
     Dosage: 200 MG, 2X/DAY
     Route: 064
     Dates: start: 20030617
  4. PHENERGAN [Concomitant]
     Active Substance: PROMETHAZINE HYDROCHLORIDE
     Indication: NAUSEA
     Dosage: 12.5 MG, AS NEEDED EVERY 4-6 HOURS
     Route: 064
     Dates: start: 20030116
  5. PYRIDIUM [Concomitant]
     Active Substance: PHENAZOPYRIDINE
     Dosage: 100 MG, UNK
     Route: 064
  6. ZOLOFT [Suspect]
     Active Substance: SERTRALINE HYDROCHLORIDE
     Dosage: 200 MG, 1X/DAY (EVERY MORNING)
     Route: 064
     Dates: start: 20030617
  7. MACRODANTIN [Concomitant]
     Active Substance: NITROFURANTOIN
     Dosage: 100 MG, 3X/DAY
     Route: 064
  8. ACETAMINOPHEN AND CODEINE [Concomitant]
     Active Substance: ACETAMINOPHEN\CODEINE PHOSPHATE
     Indication: PAIN
     Dosage: ONE OR TWO TABLETS EVERY FOUR TO SIX HOURS AS NEEDED
     Route: 064
     Dates: start: 20030622
  9. PHENERGAN [Concomitant]
     Active Substance: PROMETHAZINE HYDROCHLORIDE
     Indication: VOMITING
  10. BENADRYL [Concomitant]
     Active Substance: DIPHENHYDRAMINE HYDROCHLORIDE
     Indication: PRURITUS
     Dosage: 12.5 MG, AS NEEDED EVERY 4-6 HOURS
     Route: 064
     Dates: start: 20030116
  11. ZOFRAN [Concomitant]
     Active Substance: ONDANSETRON HYDROCHLORIDE
     Dosage: 100 MG, UNK
     Route: 064
  12. MACROBID [Concomitant]
     Active Substance: NITROFURANTOIN\NITROFURANTOIN MONOHYDRATE
     Dosage: UNK
     Route: 064
     Dates: start: 20030117
  13. AMPICILLIN [Concomitant]
     Active Substance: AMPICILLIN
     Dosage: 500 MG, 1X/DAY
     Route: 064
     Dates: start: 20021210
  14. PYRIDIUM [Concomitant]
     Active Substance: PHENAZOPYRIDINE
     Dosage: 100 MG, 3X/DAY
     Route: 064
     Dates: start: 20030117
  15. TERBUTALINE [Concomitant]
     Active Substance: TERBUTALINE
     Dosage: 25 MG, UNK
     Route: 064
     Dates: start: 20030607
  16. ZOLOFT [Suspect]
     Active Substance: SERTRALINE HYDROCHLORIDE
     Dosage: 50 MG, 2X/DAY
     Route: 064
     Dates: start: 20021010
  17. PERCOCET [Concomitant]
     Active Substance: ACETAMINOPHEN\OXYCODONE HYDROCHLORIDE
     Dosage: UNK, ONE TO TWO EVERY FOUR TO SIX HOURS
     Route: 064
     Dates: start: 20030117
  18. WELLBUTRIN [Concomitant]
     Active Substance: BUPROPION HYDROCHLORIDE
     Dosage: 150 MG, 2X/DAY
     Route: 064
  19. PRENATAL VITAMINS [Concomitant]
     Active Substance: VITAMINS
     Dosage: 1 DF, 1X/DAY (ONE TABLET ORALLY)
     Route: 064
     Dates: start: 20021010
  20. AMBIEN [Concomitant]
     Active Substance: ZOLPIDEM TARTRATE
     Dosage: 5 MG TABLET ONE OR TWO TABLETS AT BEDTIME
     Route: 064
     Dates: start: 20030708
  21. COLACE [Concomitant]
     Active Substance: DOCUSATE SODIUM
     Dosage: UNK
     Route: 064

REACTIONS (10)
  - Heart disease congenital [Not Recovered/Not Resolved]
  - Ventricular septal defect [Unknown]
  - Atrial septal defect [Unknown]
  - Cardiac failure congestive [Unknown]
  - Congenital aortic stenosis [Unknown]
  - Coarctation of the aorta [Recovered/Resolved]
  - Bicuspid aortic valve [Unknown]
  - Patent ductus arteriosus [Unknown]
  - Maternal exposure timing unspecified [Not Recovered/Not Resolved]
  - Right ventricular hypertrophy [Unknown]

NARRATIVE: CASE EVENT DATE: 20030717
